FAERS Safety Report 25643802 (Version 1)
Quarter: 2025Q3

REPORT INFORMATION
  Report Type: Spontaneous
  Country: AU (occurrence: AU)
  Receive Date: 20250805
  Receipt Date: 20250805
  Transmission Date: 20251021
  Serious: Yes (Hospitalization, Other)
  Sender: MERCK SHARP & DOHME LLC
  Company Number: AU-009507513-2315330

PATIENT
  Age: 81 Year
  Sex: Male

DRUGS (1)
  1. PEMBROLIZUMAB [Suspect]
     Active Substance: PEMBROLIZUMAB

REACTIONS (10)
  - Pericardial effusion [Unknown]
  - Decreased appetite [Unknown]
  - Cough [Not Recovered/Not Resolved]
  - Malignant neoplasm progression [Unknown]
  - Febrile neutropenia [Recovered/Resolved]
  - Therapy partial responder [Unknown]
  - Arthralgia [Unknown]
  - Fatigue [Unknown]
  - Cortisol abnormal [Unknown]
  - Adrenal insufficiency [Unknown]
